FAERS Safety Report 5131534-2 (Version None)
Quarter: 2006Q4

REPORT INFORMATION
  Report Type: 
  Country: None (occurrence: None)
  Receive Date: 20061020
  Receipt Date: 20040422
  Transmission Date: 20070319
  Serious: Yes (Hospitalization, Other)
  Sender: FDA-Public Use
  Company Number: PHBS2004TR05455

PATIENT
  Age: 36 Year
  Sex: Female

DRUGS (3)
  1. PROZAC [Concomitant]
     Route: 065
  2. ZELMAC [Suspect]
     Indication: IRRITABLE BOWEL SYNDROME
     Dosage: UNK, QD
     Route: 065
  3. VITAMIN B-12 [Concomitant]
     Indication: VITAMIN B12 DEFICIENCY

REACTIONS (7)
  - ABDOMINAL PAIN [None]
  - ANAEMIA MEGALOBLASTIC [None]
  - CONTUSION [None]
  - DIARRHOEA [None]
  - GASTROINTESTINAL INFECTION [None]
  - HYPOTENSION [None]
  - LIVER FUNCTION TEST ABNORMAL [None]
